FAERS Safety Report 9172393 (Version 1)
Quarter: 2012Q4

REPORT INFORMATION
  Report Type: 
  Country: AU (occurrence: AU)
  Receive Date: 20120911
  Receipt Date: 20120911
  Transmission Date: 20130627
  Serious: Yes (Hospitalization)
  Sender: FDA-Public Use
  Company Number: AU-MUTUAL PHARMACEUTICAL COMPANY, INC.-IBPF20120002

PATIENT
  Weight: .91 kg

DRUGS (3)
  1. PEDEA [Suspect]
     Indication: PATENT DUCTUS ARTERIOSUS
     Route: 042
  2. PEDEA [Suspect]
     Route: 042
  3. PEDEA [Suspect]
     Route: 042

REACTIONS (1)
  - Pulmonary hypertension [Unknown]
